FAERS Safety Report 5143336-1 (Version None)
Quarter: 2006Q4

REPORT INFORMATION
  Report Type: 
  Country: None (occurrence: None)
  Receive Date: 20061103
  Receipt Date: 20061026
  Transmission Date: 20070319
  Serious: Yes (Other)
  Sender: FDA-Public Use
  Company Number: US-ROCHE-469043

PATIENT
  Age: 26 Year
  Sex: Female
  Weight: 73.5 kg

DRUGS (1)
  1. ACCUTANE [Suspect]
     Indication: ACNE
     Dosage: HAS TAKEN IT ON AND OFF.
     Route: 048
     Dates: start: 19950615, end: 20010615

REACTIONS (1)
  - PITUITARY TUMOUR [None]
